FAERS Safety Report 5466648-0 (Version None)
Quarter: 2007Q3

REPORT INFORMATION
  Report Type: 
  Country: None (occurrence: None)
  Receive Date: 20070925
  Receipt Date: 20070913
  Transmission Date: 20080115
  Serious: Yes (Death)
  Sender: FDA-Public Use
  Company Number: HQWYE929030AUG07

PATIENT
  Age: 45 Year
  Sex: Male

DRUGS (10)
  1. EFFEXOR XR [Suspect]
     Indication: DEPRESSION
     Dosage: OVERDOSE AMOUNT UNKNOWN
     Route: 048
     Dates: start: 20070630, end: 20070630
  2. ZOLOFT [Concomitant]
  3. TEMAZEPAM [Concomitant]
     Dosage: 30 QD
  4. AVINZA [Concomitant]
     Dosage: 120 QD
  5. BUSPAR [Concomitant]
     Dosage: 40/D
  6. PAXIL [Concomitant]
     Dosage: 40 QD
  7. NORTRIPTYLINE HCL [Concomitant]
     Dosage: 50 QD
  8. TOPROL-XL [Concomitant]
     Dosage: 100 QD
  9. KLONOPIN [Concomitant]
  10. FLEXERIL [Concomitant]
     Dosage: UNKNOWN

REACTIONS (2)
  - ANTIDEPRESSANT DRUG LEVEL INCREASED [None]
  - OVERDOSE [None]
